FAERS Safety Report 5407494-3 (Version None)
Quarter: 2007Q3

REPORT INFORMATION
  Report Type: 
  Country: None (occurrence: None)
  Receive Date: 20070807
  Receipt Date: 20070727
  Transmission Date: 20080115
  Serious: Yes (Other)
  Sender: FDA-Public Use
  Company Number: US-PFIZER INC-2007063038

PATIENT
  Age: 45 Year
  Sex: Male
  Weight: 66.7 kg

DRUGS (2)
  1. LYRICA [Suspect]
     Indication: NEURALGIA
  2. DILANTIN KAPSEAL [Concomitant]

REACTIONS (3)
  - HAEMOGLOBIN DECREASED [None]
  - HYPOMAGNESAEMIA [None]
  - LEUKOPENIA [None]
